FAERS Safety Report 8519108-4 (Version None)
Quarter: 2012Q3

REPORT INFORMATION
  Report Type: 
  Country: None (occurrence: None)
  Receive Date: 20120718
  Receipt Date: 20120710
  Transmission Date: 20120928
  Serious: Yes (Hospitalization, Other)
  Sender: FDA-Public Use
  Company Number: NL-ABBOTT-12P-114-0955309-00

PATIENT
  Sex: Male
  Weight: 102 kg

DRUGS (1)
  1. LEUPROLIDE ACETATE [Suspect]
     Indication: PROSTATE CANCER
     Route: 058
     Dates: start: 20120105

REACTIONS (3)
  - BLOOD URINE PRESENT [None]
  - BLADDER MASS [None]
  - HOT FLUSH [None]
